FAERS Safety Report 7323406-X (Version None)
Quarter: 2011Q1

REPORT INFORMATION
  Report Type: 
  Country: None (occurrence: None)
  Receive Date: 20110301
  Receipt Date: 20110203
  Transmission Date: 20110831
  Serious: No
  Sender: FDA-Public Use
  Company Number: US-B.I. PHARMACEUTICALS,INC./RIDGEFIELD-2010-BP-14544BP

PATIENT
  Sex: Female
  Weight: 89.45 kg

DRUGS (10)
  1. PROAIR HFA [Concomitant]
     Dosage: 1 PUF
  2. LANTUS [Concomitant]
  3. SPIRIVA [Suspect]
     Indication: CHRONIC OBSTRUCTIVE PULMONARY DISEASE
     Dosage: 18 MCG
     Route: 055
     Dates: start: 20100801, end: 20101130
  4. GLUCOVANCE [Concomitant]
  5. ALBUTEROL [Concomitant]
     Dates: start: 20100308
  6. PROVENTIL GENTLEHALER [Concomitant]
     Dates: start: 20091101
  7. DIOVAN [Concomitant]
  8. OSCAL [Concomitant]
     Dosage: 1250 MG
  9. FOSAMAX [Concomitant]
  10. ADVAIR DISKUS 100/50 [Concomitant]
     Dosage: 2 PUF
     Dates: start: 20091101

REACTIONS (8)
  - DYSPNOEA [None]
  - LUNG DISORDER [None]
  - PAIN [None]
  - DRUG HYPERSENSITIVITY [None]
  - WHEEZING [None]
  - COUGH [None]
  - INSOMNIA [None]
  - ASTHMA [None]
